FAERS Safety Report 7649902-3 (Version None)
Quarter: 2011Q3

REPORT INFORMATION
  Report Type: 
  Country: None (occurrence: None)
  Receive Date: 20110802
  Receipt Date: 20100316
  Transmission Date: 20111222
  Serious: Yes (Other)
  Sender: FDA-Public Use
  Company Number: US-BAYER-201037592NA

PATIENT
  Sex: Female
  Weight: 74 kg

DRUGS (18)
  1. MAGNEVIST [Suspect]
     Indication: VENOGRAM
  2. TUMS [CALCIUM CARBONATE] [Concomitant]
  3. EPOGEN [Concomitant]
  4. PREDNISONE TAB [Concomitant]
  5. GANCICLOVIR [Concomitant]
  6. MAGNEVIST [Suspect]
     Indication: ANGIOGRAM
     Dosage: 40 ML
     Route: 042
     Dates: start: 20060519
  7. SODIUM FERRIGLUCONATE [Concomitant]
  8. PHOSLO [Concomitant]
  9. DOXERCALCIFEROL [Concomitant]
  10. VALGANCICLOVIR [Concomitant]
  11. ZEMPLAR [Concomitant]
  12. PROGRAF [Concomitant]
  13. COUMADIN [Concomitant]
  14. MAGNEVIST [Suspect]
     Indication: NUCLEAR MAGNETIC RESONANCE IMAGING
     Dosage: 20 ML, UNK
     Route: 042
     Dates: start: 20060324
  15. CALCITRIOL [Concomitant]
  16. CELLCEPT [Concomitant]
  17. CAMPATH [Concomitant]
  18. MIDODRINE HYDROCHLORIDE [Concomitant]

REACTIONS (1)
  - NEPHROGENIC SYSTEMIC FIBROSIS [None]
